FAERS Safety Report 26012408 (Version 1)
Quarter: 2025Q4

REPORT INFORMATION
  Report Type: Spontaneous
  Country: CN (occurrence: CN)
  Receive Date: 20251107
  Receipt Date: 20251107
  Transmission Date: 20260118
  Serious: Yes (Life-Threatening)
  Sender: FRESENIUS KABI
  Company Number: CN-FreseniusKabi-FK202514833

PATIENT
  Age: 21 Year
  Sex: Male

DRUGS (3)
  1. PROPOFOL [Suspect]
     Active Substance: PROPOFOL
     Indication: Anaesthesia
     Dosage: FOA: INJECTION
     Route: 042
     Dates: start: 20251027, end: 20251027
  2. REMIMAZOLAM BESYLATE [Suspect]
     Active Substance: REMIMAZOLAM BESYLATE
     Indication: Anaesthesia
     Dosage: DOSAGE FORM: POWDER FOR INJECTION
     Route: 042
     Dates: start: 20251027, end: 20251027
  3. PENEHYCLIDINE HYDROCHLORIDE [Concomitant]
     Active Substance: PENEHYCLIDINE HYDROCHLORIDE
     Indication: Anaesthesia
     Dosage: DOSAGE FORM: INJECTION
     Route: 042
     Dates: start: 20251027, end: 20251027

REACTIONS (1)
  - Anaphylactic shock [Recovered/Resolved]

NARRATIVE: CASE EVENT DATE: 20251027
